FAERS Safety Report 7276378-0 (Version None)
Quarter: 2011Q1

REPORT INFORMATION
  Report Type: 
  Country: None (occurrence: None)
  Receive Date: 20110204
  Receipt Date: 20110201
  Transmission Date: 20110831
  Serious: Yes (Death, Hospitalization)
  Sender: FDA-Public Use
  Company Number: FR-PFIZER INC-2011022557

PATIENT
  Age: 85 Year
  Sex: Female

DRUGS (12)
  1. MIRTAZAPINE [Concomitant]
  2. ACETAMINOPHEN [Concomitant]
  3. FUMAFER [Concomitant]
  4. LYRICA [Suspect]
     Dosage: 25 MG, 2X/DAY
     Route: 048
     Dates: start: 20110115, end: 20110117
  5. TEMERIT [Concomitant]
  6. SPIRONOLACTONE [Concomitant]
  7. CETORNAN [Concomitant]
  8. ZYVOX [Suspect]
     Dosage: 600 MG, 2X/DAY
     Route: 048
     Dates: start: 20110110, end: 20110117
  9. CONTRAMAL [Suspect]
     Dosage: 100 MG, 2X/DAY
     Route: 048
     Dates: start: 20110115, end: 20110117
  10. LASIX [Concomitant]
  11. CORDARONE [Concomitant]
  12. PREVISCAN [Concomitant]

REACTIONS (4)
  - UROSEPSIS [None]
  - DEHYDRATION [None]
  - CARDIAC FAILURE [None]
  - STATUS EPILEPTICUS [None]
